FAERS Safety Report 18613896 (Version 1)
Quarter: 2020Q4

REPORT INFORMATION
  Report Type: Spontaneous
  Country: US (occurrence: US)
  Receive Date: 20201214
  Receipt Date: 20201214
  Transmission Date: 20210114
  Serious: No
  Sender: FDA-Public Use
  Company Number: US-ABBVIE-20K-163-3612004-00

PATIENT
  Age: 77 Year
  Sex: Female

DRUGS (1)
  1. IMBRUVICA [Suspect]
     Active Substance: IBRUTINIB
     Indication: BLOOD CHLORIDE
     Route: 048
     Dates: start: 202008

REACTIONS (4)
  - Haemorrhage urinary tract [Recovered/Resolved]
  - White blood cell count decreased [Unknown]
  - White blood cell count increased [Recovering/Resolving]
  - Perineal cellulitis [Not Recovered/Not Resolved]

NARRATIVE: CASE EVENT DATE: 2020
